FAERS Safety Report 21323751 (Version 4)
Quarter: 2022Q4

REPORT INFORMATION
  Report Type: Report from Study
  Country: JP (occurrence: JP)
  Receive Date: 20220912
  Receipt Date: 20221228
  Transmission Date: 20230112
  Serious: Yes (Death, Hospitalization, Other)
  Sender: FDA-Public Use
  Company Number: JP-ONO-2022JP023444

PATIENT
  Age: 75 Year
  Weight: 51.6 kg

DRUGS (7)
  1. BRAFTOVI [Suspect]
     Active Substance: ENCORAFENIB
     Indication: Colon cancer
     Dosage: 300 MG, EVERYDAY
     Route: 048
     Dates: start: 20220531, end: 20220822
  2. BRAFTOVI [Suspect]
     Active Substance: ENCORAFENIB
     Dosage: 300 MG, EVERYDAY
     Route: 048
     Dates: end: 20221217
  3. CETUXIMAB [Suspect]
     Active Substance: CETUXIMAB
     Indication: Colon cancer
     Dosage: 250 MG
     Route: 065
     Dates: start: 20220531, end: 20220816
  4. CETUXIMAB [Suspect]
     Active Substance: CETUXIMAB
     Dosage: 385 MG
     Route: 065
     Dates: end: 20221212
  5. LANSOPRAZOLE [Concomitant]
     Active Substance: LANSOPRAZOLE
     Dosage: 15 MG, EVERYDAY
     Route: 048
     Dates: end: 20221217
  6. MINOCYCLINE HYDROCHLORIDE [Concomitant]
     Active Substance: MINOCYCLINE HYDROCHLORIDE
     Dosage: 100 MG, EVERYDAY
     Route: 048
     Dates: end: 20220822
  7. ACETAMINOPHEN [Concomitant]
     Active Substance: ACETAMINOPHEN
     Dosage: 300 MG (ORAL DRUG UNSPECIFIED FORM )
     Route: 048
     Dates: start: 20221217, end: 20221217

REACTIONS (5)
  - Intestinal perforation [Fatal]
  - Sepsis [Fatal]
  - Peritonitis bacterial [Fatal]
  - Pyrexia [Recovered/Resolved]
  - Fungaemia [Recovered/Resolved]

NARRATIVE: CASE EVENT DATE: 20220820
